FAERS Safety Report 25172837 (Version 1)
Quarter: 2025Q2

REPORT INFORMATION
  Report Type: Spontaneous
  Country: CA (occurrence: CA)
  Receive Date: 20250408
  Receipt Date: 20250408
  Transmission Date: 20250717
  Serious: Yes (Other)
  Sender: TEVA
  Company Number: CA-TEVA-VS-3319339

PATIENT
  Age: 48 Year
  Sex: Female

DRUGS (2)
  1. METHOTREXATE SODIUM [Suspect]
     Active Substance: METHOTREXATE SODIUM
     Indication: Immunoglobulin G4 related disease
     Route: 065
  2. PREDNISONE [Concomitant]
     Active Substance: PREDNISONE
     Indication: Product used for unknown indication
     Route: 065

REACTIONS (10)
  - Intraductal papillary mucinous neoplasm [Recovering/Resolving]
  - Gingival hypertrophy [Recovering/Resolving]
  - Gingival swelling [Recovering/Resolving]
  - Inflammation [Recovering/Resolving]
  - Drug ineffective for unapproved indication [Recovering/Resolving]
  - Immunoglobulins increased [Recovering/Resolving]
  - Cyst [Recovering/Resolving]
  - Hypotension [Recovering/Resolving]
  - Off label use [Recovering/Resolving]
  - Laryngeal stenosis [Recovering/Resolving]
